FAERS Safety Report 10435178 (Version 1)
Quarter: 2014Q3

REPORT INFORMATION
  Report Type: Spontaneous
  Country: JP (occurrence: JP)
  Receive Date: 20140907
  Receipt Date: 20140907
  Transmission Date: 20150326
  Serious: Yes (Death)
  Sender: FDA-Public Use
  Company Number: PHHY2012JP135857

PATIENT
  Age: 74 Year
  Sex: Male

DRUGS (3)
  1. GLIVEC [Suspect]
     Active Substance: IMATINIB MESYLATE
     Indication: CHRONIC MYELOID LEUKAEMIA
     Dosage: 400 MG, DAILY
     Dates: start: 200904
  2. NEDAPLATIN [Concomitant]
     Active Substance: NEDAPLATIN
     Dosage: UNK UKN, UNK
  3. 5 FU [Concomitant]
     Active Substance: FLUOROURACIL
     Dosage: UNK UKN, UNK

REACTIONS (1)
  - Neoplasm malignant [Fatal]
